FAERS Safety Report 15194709 (Version 1)
Quarter: 2018Q3

REPORT INFORMATION
  Report Type: Spontaneous
  Country: US (occurrence: US)
  Receive Date: 20180725
  Receipt Date: 20180725
  Transmission Date: 20181010
  Serious: No
  Sender: FDA-Public Use
  Company Number: US-VIIV HEALTHCARE LIMITED-US2018GSK128318

PATIENT

DRUGS (1)
  1. TIVICAY [Suspect]
     Active Substance: DOLUTEGRAVIR SODIUM
     Indication: PRODUCT USED FOR UNKNOWN INDICATION
     Dosage: UNK
     Dates: start: 201707

REACTIONS (8)
  - Sleep disorder [Unknown]
  - Agitation [Unknown]
  - Anxiety [Unknown]
  - Dizziness [Unknown]
  - Bradyphrenia [Unknown]
  - Disturbance in attention [Unknown]
  - Insomnia [Unknown]
  - Headache [Unknown]
